FAERS Safety Report 14116867 (Version 1)
Quarter: 2017Q4

REPORT INFORMATION
  Report Type: Spontaneous
  Country: US (occurrence: US)
  Receive Date: 20171023
  Receipt Date: 20171023
  Transmission Date: 20180321
  Serious: Yes (Other)
  Sender: FDA-Public Use
  Company Number: US-NAPPMUNDI-USA-2017-0140143

PATIENT
  Sex: Male

DRUGS (5)
  1. SUBOXONE [Suspect]
     Active Substance: BUPRENORPHINE HYDROCHLORIDE\NALOXONE HYDROCHLORIDE
     Indication: PRODUCT USED FOR UNKNOWN INDICATION
     Dosage: UNK
     Route: 065
  2. HEROIN [Suspect]
     Active Substance: DIAMORPHINE
     Dosage: UNK
     Route: 042
  3. HEROIN [Suspect]
     Active Substance: DIAMORPHINE
     Indication: SUBSTANCE USE DISORDER
     Dosage: UNK
  4. METHYLENEDIOXYMETHAMPHETAMINE [Suspect]
     Active Substance: MIDOMAFETAMINE
     Indication: SUBSTANCE USE DISORDER
     Dosage: UNK
     Route: 065
  5. OXYCODONE HYDROCHLORIDE (SIMILAR TO NDA 22-272) [Suspect]
     Active Substance: OXYCODONE HYDROCHLORIDE
     Indication: PRODUCT USED FOR UNKNOWN INDICATION
     Dosage: 30 MG, UNK
     Route: 048

REACTIONS (11)
  - Substance dependence [Recovering/Resolving]
  - Feeling abnormal [Unknown]
  - Drug detoxification [Unknown]
  - Substance abuse [Recovering/Resolving]
  - Vomiting [Unknown]
  - Euphoric mood [Unknown]
  - Unevaluable event [Unknown]
  - Homeless [Unknown]
  - Overdose [Unknown]
  - Paranoia [Unknown]
  - Depression [Unknown]
